FAERS Safety Report 10162574 (Version 1)
Quarter: 2014Q2

REPORT INFORMATION
  Report Type: Spontaneous
  Country: CH (occurrence: CH)
  Receive Date: 20140509
  Receipt Date: 20140509
  Transmission Date: 20141212
  Serious: Yes (Hospitalization, Other)
  Sender: FDA-Public Use
  Company Number: CH-TEVA-479663ISR

PATIENT
  Age: 81 Year
  Sex: Male

DRUGS (11)
  1. OLFEN-75 RETARD DEPOTABS [Suspect]
     Indication: PRODUCT USED FOR UNKNOWN INDICATION
     Dosage: 75 MILLIGRAM DAILY; 0-0-1-0, START DATE UNKNOWN
     Route: 048
     Dates: end: 20140416
  2. ASPIRIN CARDIO 100 FILMTABLETTEN [Interacting]
     Indication: PRODUCT USED FOR UNKNOWN INDICATION
     Dosage: 100 MILLIGRAM DAILY; 1-0-0-0, LONG TERM
     Route: 048
  3. AMLODIPIN SANDOZ ECO 5 MG [Concomitant]
     Indication: ESSENTIAL HYPERTENSION
     Dosage: 5 MILLIGRAM DAILY; 1-0-0-0
     Route: 048
  4. ATACAND PLUS [Concomitant]
     Indication: ESSENTIAL HYPERTENSION
     Dosage: 1.5 DOSAGE FORMS DAILY; 1.5-0-0-0, 1 DF = 16 MG CANDESARTAN AND 12.5 MG HYDROCHLOROTHIAZIDE
     Route: 048
  5. CONDROSULF 400 MG [Concomitant]
     Indication: OSTEOARTHRITIS
     Dosage: 800 MILLIGRAM DAILY; 2-0-0-0
     Route: 048
  6. METFORMIN-MEPHA 500 MG [Concomitant]
     Indication: TYPE 2 DIABETES MELLITUS
     Dosage: 1000 MILLIGRAM DAILY; 1-0-1-0
     Route: 048
  7. NEXIUM MUPS 40 MG [Concomitant]
     Indication: PRODUCT USED FOR UNKNOWN INDICATION
     Dosage: 40 MILLIGRAM DAILY; 1-0-0-0
     Route: 048
  8. PRADIF T RETARD 400 MCG [Concomitant]
     Indication: PROSTATE CANCER
     Dosage: .4 MILLIGRAM DAILY; 1-0-0-0
     Route: 048
  9. SIMVASTATIN STREULI 40 MG [Concomitant]
     Indication: DYSLIPIDAEMIA
     Dosage: 20 MILLIGRAM DAILY; 0.5-0-0-0
     Route: 048
  10. TEBOKAN [Concomitant]
     Indication: PRODUCT USED FOR UNKNOWN INDICATION
     Dosage: 240 MILLIGRAM DAILY; 1-0-1-0
     Route: 048
  11. INSULIN NOVORAPID [Concomitant]
     Indication: TYPE 2 DIABETES MELLITUS
     Dosage: ACCORDING TO SCHEDULE, ADMINISTERED DURING THE HOSPITALIZATION
     Route: 058
     Dates: start: 20140416, end: 20140419

REACTIONS (4)
  - Epistaxis [Unknown]
  - Haemorrhagic anaemia [Unknown]
  - Drug interaction [Unknown]
  - Hypertensive crisis [Unknown]
